FAERS Safety Report 22137698 (Version 1)
Quarter: 2023Q1

REPORT INFORMATION
  Report Type: Spontaneous
  Country: US (occurrence: None)
  Receive Date: 20230325
  Receipt Date: 20230325
  Transmission Date: 20230417
  Serious: No
  Sender: FDA-Public Use
  Company Number: 2023A055642

PATIENT
  Sex: Male

DRUGS (1)
  1. BUDESONIDE\FORMOTEROL\GLYCOPYRRONIUM [Suspect]
     Active Substance: BUDESONIDE\FORMOTEROL\GLYCOPYRRONIUM
     Dosage: 160/9/4.8MCG, 2 PUFFS TWICE A DAY
     Route: 055

REACTIONS (8)
  - Dyspnoea exertional [Unknown]
  - Asthma [Unknown]
  - Lung disorder [Unknown]
  - Confusional state [Unknown]
  - Dyspnoea [Unknown]
  - Device defective [Unknown]
  - Wrong technique in device usage process [Unknown]
  - Drug ineffective [Unknown]
